FAERS Safety Report 5672954-7 (Version None)
Quarter: 2008Q1

REPORT INFORMATION
  Report Type: 
  Country: None (occurrence: None)
  Receive Date: 20080319
  Receipt Date: 20080108
  Transmission Date: 20080703
  Serious: Yes (Other)
  Sender: FDA-Public Use
  Company Number: US-ASTRAZENECA-2007UW26126

PATIENT
  Age: 82 Year
  Sex: Female

DRUGS (8)
  1. SYMBICORT [Suspect]
     Indication: HYPERSENSITIVITY
     Dosage: 80/4.5 UG
     Route: 055
  2. COUMADIN [Concomitant]
  3. DIOXIDE [Concomitant]
  4. DILTIAZEM [Concomitant]
  5. GABEPENTIN [Concomitant]
  6. ALPRAZOLAM [Concomitant]
  7. PREVACID [Concomitant]
  8. DOXYCYCLIN [Concomitant]

REACTIONS (1)
  - BRONCHOSPASM [None]
